FAERS Safety Report 6346730-6 (Version None)
Quarter: 2009Q3

REPORT INFORMATION
  Report Type: 
  Country: None (occurrence: None)
  Receive Date: 20090904
  Receipt Date: 20090901
  Transmission Date: 20100115
  Serious: Yes (Congenital Anomaly)
  Sender: FDA-Public Use
  Company Number: 1000008598

PATIENT
  Sex: Male

DRUGS (2)
  1. LEXAPRO [Suspect]
     Dosage: TRANSPLACENTAL
     Route: 064
     Dates: start: 20090301
  2. PRENATAL VITAMIN (NOS) [Concomitant]

REACTIONS (2)
  - ANENCEPHALY [None]
  - MATERNAL DRUGS AFFECTING FOETUS [None]
